FAERS Safety Report 9927653 (Version 1)
Quarter: 2014Q1

REPORT INFORMATION
  Report Type: Spontaneous
  Country: US (occurrence: US)
  Receive Date: 20140227
  Receipt Date: 20140227
  Transmission Date: 20141002
  Serious: No
  Sender: FDA-Public Use
  Company Number: US-BIOGENIDEC-2014BI018398

PATIENT
  Age: 30 Year
  Sex: Female

DRUGS (1)
  1. AVONEX [Suspect]
     Indication: MULTIPLE SCLEROSIS
     Route: 030
     Dates: start: 20130907

REACTIONS (4)
  - Visual impairment [Recovered/Resolved]
  - Stress [Recovered/Resolved]
  - Optic neuritis [Recovered/Resolved]
  - Pain [Recovered/Resolved]
